FAERS Safety Report 4774583-6 (Version None)
Quarter: 2005Q3

REPORT INFORMATION
  Report Type: 
  Country: None (occurrence: None)
  Receive Date: 20050919
  Receipt Date: 20050906
  Transmission Date: 20060218
  Serious: Yes (Hospitalization)
  Sender: FDA-Public Use
  Company Number: 2005-DE-03588GD

PATIENT
  Age: 21 Year
  Sex: Male

DRUGS (1)
  1. NAPROXEN [Suspect]
     Indication: RADICULITIS

REACTIONS (4)
  - MENINGITIS ASEPTIC [None]
  - RASH ERYTHEMATOUS [None]
  - RASH MACULAR [None]
  - URTICARIA [None]
